FAERS Safety Report 6217328-5 (Version None)
Quarter: 2009Q2

REPORT INFORMATION
  Report Type: 
  Country: None (occurrence: None)
  Receive Date: 20090608
  Receipt Date: 20090605
  Transmission Date: 20091009
  Serious: Yes (Other)
  Sender: FDA-Public Use
  Company Number: US-PFIZER INC-2009202442

PATIENT
  Sex: Male
  Weight: 104.31 kg

DRUGS (18)
  1. XANAX [Suspect]
     Indication: ANXIETY
     Dosage: 0.5 MG, 4X/DAY
     Dates: start: 19820101
  2. XANAX XR [Suspect]
     Dosage: 1 MG, 2X/DAY
  3. WARFARIN [Suspect]
  4. PROZAC [Concomitant]
     Dosage: 20 MG, 3X/DAY
  5. ZANTAC [Concomitant]
     Dosage: 150 MG, 1X/DAY
  6. FLOMAX [Concomitant]
     Dosage: 0.4 MG, 1X/DAY
  7. LIPITOR [Concomitant]
     Dosage: 10 MG, 1X/DAY
  8. OXYCONTIN [Concomitant]
     Dosage: UNK MG, 2X/DAY
  9. OXYCODONE [Concomitant]
     Indication: BREAKTHROUGH PAIN
     Dosage: 5 MG, AS NEEDED
  10. SINGULAIR ^DIECKMANN^ [Concomitant]
     Dosage: 10 MG, 1X/DAY
  11. CUMADIN [Concomitant]
     Dosage: 3.5 MG, 1X/DAY
  12. CELEBREX [Concomitant]
     Dosage: 200 MG, 1X/DAY
  13. AMBIEN [Concomitant]
     Dosage: 12.5 MG, 1X/DAY
  14. PRILOSEC [Concomitant]
     Dosage: 20 MG, 1X/DAY
  15. ADVAIR HFA [Concomitant]
     Dosage: 250 MG, UNK
     Route: 055
  16. SPIRIVA [Concomitant]
     Dosage: 18 UG, 1X/DAY
     Route: 055
  17. ASPIRIN [Concomitant]
     Dosage: 81 MG, UNK
  18. POLYETHYLENE GLYCOL [Concomitant]
     Indication: CONSTIPATION

REACTIONS (5)
  - ANXIETY [None]
  - HAEMORRHAGIC DIATHESIS [None]
  - INSOMNIA [None]
  - WISDOM TEETH REMOVAL [None]
  - WITHDRAWAL SYNDROME [None]
